FAERS Safety Report 19112873 (Version 1)
Quarter: 2021Q2

REPORT INFORMATION
  Report Type: Spontaneous
  Country: US (occurrence: US)
  Receive Date: 20210409
  Receipt Date: 20210409
  Transmission Date: 20210717
  Serious: No
  Sender: FDA-Public Use
  Company Number: US-ALLERGAN-2046049US

PATIENT
  Age: 30 Year
  Sex: Female
  Weight: 72.58 kg

DRUGS (4)
  1. LILETTA [Suspect]
     Active Substance: LEVONORGESTREL
     Indication: CONTRACEPTION
     Dosage: 52 MG, SINGLE
     Route: 015
     Dates: start: 20200917
  2. CITRANATAL 90 [Concomitant]
     Dosage: ORALLY ONE OF EACH
  3. MG [Concomitant]
     Active Substance: MAGNESIUM
     Dosage: ORALLY ONE OF EACH
  4. DHA [Concomitant]
     Active Substance: DIETARY SUPPLEMENT
     Dosage: 90?1 AND 300, ORALLY ONE OF EACH

REACTIONS (1)
  - Device expulsion [Unknown]

NARRATIVE: CASE EVENT DATE: 20201029
